FAERS Safety Report 8307291-5 (Version None)
Quarter: 2012Q2

REPORT INFORMATION
  Report Type: 
  Country: None (occurrence: None)
  Receive Date: 20120424
  Receipt Date: 20120417
  Transmission Date: 20120825
  Serious: Yes (Other)
  Sender: FDA-Public Use
  Company Number: US-BAYER-2012-038552

PATIENT
  Age: 36 Year
  Sex: Female

DRUGS (9)
  1. BUTALBITAL ACETAMINOPHEN AND CAFFEINE [Concomitant]
     Dosage: 50-325-40, TAKE 1 TABLET EVERY 6 HOURS AS NEEDED
  2. ASPIRIN [Concomitant]
  3. LEVOTHYROXINE SODIUM [Concomitant]
     Indication: HYPOTHYROIDISM
     Dosage: 50 MCG/24HR, UNK
  4. TRAZODONE HCL [Concomitant]
     Dosage: 50 MG, HS
  5. YAZ [Suspect]
  6. CLONAZEPAM [Concomitant]
     Dosage: 0.5 MG, HS
  7. DROSPIRENONE AND ETHINYL ESTRADIOL [Suspect]
  8. VITAFOL-OB+DHA [Concomitant]
     Dosage: 65-1-250 MG
  9. FLECAINIDE ACETATE [Concomitant]
     Dosage: 50 MG, UNK

REACTIONS (2)
  - PULMONARY EMBOLISM [None]
  - MYOCARDIAL INFARCTION [None]
